FAERS Safety Report 18311859 (Version 1)
Quarter: 2020Q3

REPORT INFORMATION
  Report Type: Spontaneous
  Country: US (occurrence: US)
  Receive Date: 20200924
  Receipt Date: 20200924
  Transmission Date: 20201103
  Serious: No
  Sender: FDA-Public Use
  Company Number: None

PATIENT
  Age: 38 Year
  Sex: Male

DRUGS (21)
  1. BISACODYL. [Suspect]
     Active Substance: BISACODYL
  2. MIDODRINE [Suspect]
     Active Substance: MIDODRINE
  3. LACTULOSE. [Suspect]
     Active Substance: LACTULOSE
  4. METOCLOPRAMIDE. [Suspect]
     Active Substance: METOCLOPRAMIDE
  5. DEXAMETHASONE. [Suspect]
     Active Substance: DEXAMETHASONE
  6. ALBUTEROL. [Suspect]
     Active Substance: ALBUTEROL
  7. BACLOFEN. [Suspect]
     Active Substance: BACLOFEN
  8. SYMBICORT [Suspect]
     Active Substance: BUDESONIDE\FORMOTEROL FUMARATE DIHYDRATE
  9. VITAMIN D3 [Suspect]
     Active Substance: CHOLECALCIFEROL
  10. OXYBUTYNIN. [Suspect]
     Active Substance: OXYBUTYNIN CHLORIDE
  11. ASCORBIC ACID. [Suspect]
     Active Substance: ASCORBIC ACID
  12. OXYCODONE [Suspect]
     Active Substance: OXYCODONE
  13. MIRALAX [Suspect]
     Active Substance: POLYETHYLENE GLYCOL 3350
  14. ZINC GLUCONATE [Suspect]
     Active Substance: ZINC GLUCONATE
  15. CETIRIZINE [Suspect]
     Active Substance: CETIRIZINE HYDROCHLORIDE
  16. ENOXAPARIN [Suspect]
     Active Substance: ENOXAPARIN
  17. GABAPENTIN. [Suspect]
     Active Substance: GABAPENTIN
  18. SENNA PLUS [Suspect]
     Active Substance: DOCUSATE SODIUM\SENNOSIDES\SENNOSIDES A AND B
  19. REMDESIVIR. [Suspect]
     Active Substance: REMDESIVIR
     Indication: COVID-19
     Dates: start: 20200730, end: 20200801
  20. CEFTRIAXONE. [Suspect]
     Active Substance: CEFTRIAXONE
  21. DOXYCYCLINE. [Suspect]
     Active Substance: DOXYCYCLINE

REACTIONS (2)
  - Hypotension [None]
  - Bradycardia [None]
